FAERS Safety Report 5675568-8 (Version None)
Quarter: 2008Q1

REPORT INFORMATION
  Report Type: 
  Country: None (occurrence: None)
  Receive Date: 20080321
  Receipt Date: 20080312
  Transmission Date: 20080703
  Serious: Yes (Life-Threatening)
  Sender: FDA-Public Use
  Company Number: JP-JNJFOC-20080301291

PATIENT
  Sex: Female
  Weight: 60 kg

DRUGS (10)
  1. ITRIZOLE [Suspect]
     Indication: DRUG USE FOR UNKNOWN INDICATION
     Route: 048
  2. OMEPRAL [Suspect]
     Indication: GASTRIC ULCER
     Route: 048
  3. VESANOID [Concomitant]
     Indication: ACUTE PROMYELOCYTIC LEUKAEMIA
     Route: 048
  4. PROMAC [Concomitant]
     Indication: GASTRIC ULCER
     Route: 048
  5. DIOVAN [Concomitant]
     Indication: HYPERTENSION
     Route: 048
  6. VALTREX [Concomitant]
     Indication: HERPES ZOSTER
     Route: 048
  7. TERNELIN [Concomitant]
     Route: 048
  8. HOKUNALIN:TAPE [Concomitant]
     Indication: ASTHMA
     Route: 062
  9. SINGULAIR [Concomitant]
     Indication: ASTHMA
     Route: 048
  10. LASIX [Concomitant]
     Indication: CARDIAC FAILURE
     Route: 048

REACTIONS (1)
  - VENTRICULAR FIBRILLATION [None]
